FAERS Safety Report 6709956-5 (Version None)
Quarter: 2010Q2

REPORT INFORMATION
  Report Type: 
  Country: None (occurrence: None)
  Receive Date: 20100504
  Receipt Date: 20090227
  Transmission Date: 20101027
  Serious: Yes (Life-Threatening, Hospitalization, Other)
  Sender: FDA-Public Use
  Company Number: DE-SANOFI-AVENTIS-200910538DE

PATIENT
  Age: 54 Year
  Sex: Male
  Weight: 78 kg

DRUGS (12)
  1. RAMIPRIL [Suspect]
     Route: 048
  2. BISOPROLOL FUMARATE [Suspect]
     Route: 048
  3. FALITHROM ^FAHLBERG^ [Suspect]
     Indication: PULMONARY EMBOLISM
     Dosage: DOSE AS USED: ZIEL INR 2-3
     Route: 048
  4. FURORESE [Suspect]
     Route: 048
     Dates: end: 20080821
  5. HYDROCHLOROTHIAZIDE [Suspect]
     Route: 048
     Dates: end: 20080821
  6. BEROTEC [Concomitant]
     Indication: CHRONIC OBSTRUCTIVE PULMONARY DISEASE
     Dosage: DOSE AS USED: NOT REPORTED
     Route: 055
  7. NEURONTIN [Concomitant]
     Route: 048
  8. PANTOZOL [Concomitant]
     Route: 048
  9. PREGABALIN [Concomitant]
     Route: 048
  10. SIFROL [Concomitant]
     Route: 048
  11. SIMVASTATIN [Concomitant]
     Route: 048
  12. SPIRIVA [Concomitant]
     Indication: CHRONIC OBSTRUCTIVE PULMONARY DISEASE
     Dosage: DOSE AS USED: 1 DOSAGE FORM, 1 IN DAY
     Route: 055

REACTIONS (5)
  - CARDIO-RESPIRATORY ARREST [None]
  - DEHYDRATION [None]
  - ELECTROLYTE IMBALANCE [None]
  - INTERNATIONAL NORMALISED RATIO INCREASED [None]
  - PROTHROMBIN TIME PROLONGED [None]
